FAERS Safety Report 8552290-1 (Version None)
Quarter: 2012Q3

REPORT INFORMATION
  Report Type: 
  Country: None (occurrence: None)
  Receive Date: 20120723
  Receipt Date: 20120723
  Transmission Date: 20120928
  Serious: Yes (Hospitalization)
  Sender: FDA-Public Use
  Company Number: None

PATIENT
  Age: 32 Year
  Sex: Male
  Weight: 65.7716 kg

DRUGS (2)
  1. PREDNISONE [Suspect]
     Indication: MULTIPLE SCLEROSIS
     Dosage: 60 MG 1 X DAILY PO
     Route: 048
     Dates: start: 20120718, end: 20120721
  2. PREDNISONE [Suspect]
     Indication: CONDITION AGGRAVATED
     Dosage: 60 MG 1 X DAILY PO
     Route: 048
     Dates: start: 20120718, end: 20120721

REACTIONS (7)
  - SCREAMING [None]
  - ANGER [None]
  - PANIC ATTACK [None]
  - FEAR [None]
  - MANIA [None]
  - SPEECH DISORDER [None]
  - INSOMNIA [None]
